FAERS Safety Report 15097406 (Version 1)
Quarter: 2018Q2

REPORT INFORMATION
  Report Type: Spontaneous
  Country: US (occurrence: US)
  Receive Date: 20180610
  Receipt Date: 20180610
  Transmission Date: 20180711
  Serious: Yes (Disabling)
  Sender: FDA-Public Use
  Company Number: None

PATIENT
  Age: 65 Year
  Sex: Female
  Weight: 69.75 kg

DRUGS (19)
  1. GLUTEN DEFENSE [Concomitant]
  2. XANAX [Suspect]
     Active Substance: ALPRAZOLAM
     Indication: NAUSEA
     Dosage: ?          OTHER FREQUENCY:5 TIMES A DAY;?
     Route: 048
     Dates: start: 20160504, end: 20180514
  3. L-THEANINE [Concomitant]
     Active Substance: DIETARY SUPPLEMENT
  4. MAGNEXYME [Concomitant]
  5. SINGULAIR [Concomitant]
     Active Substance: MONTELUKAST SODIUM
  6. VITAMIN D3 [Concomitant]
     Active Substance: CHOLECALCIFEROL
  7. OMEGA SOFT SQUEEZE [Concomitant]
  8. RAW PROBIOTICS [Concomitant]
  9. ARMOUR THYROID [Concomitant]
     Active Substance: THYROID, PORCINE
  10. COMPLETE B COMPLEX [Concomitant]
  11. LOSARTAN. [Concomitant]
     Active Substance: LOSARTAN
  12. TIGAN [Concomitant]
     Active Substance: TRIMETHOBENZAMIDE HYDROCHLORIDE
  13. ADRENAL RESILIENCE [Concomitant]
  14. LIVING VITAMIN C [Concomitant]
  15. PRILOSEC [Concomitant]
     Active Substance: OMEPRAZOLE MAGNESIUM
  16. ALPHA LIPOIC ACID [Concomitant]
     Active Substance: .ALPHA.-LIPOIC ACID
  17. SUPER MILK THISTLE [Concomitant]
  18. HEMP OIL [Concomitant]
     Active Substance: CANNABIS SATIVA SEED OIL
  19. 5 HTP [Concomitant]

REACTIONS (11)
  - Amnesia [None]
  - Dysphagia [None]
  - Cognitive disorder [None]
  - Breast cancer [None]
  - Withdrawal syndrome [None]
  - Suicidal ideation [None]
  - Skin burning sensation [None]
  - Anxiety [None]
  - Anger [None]
  - Insomnia [None]
  - Tinnitus [None]

NARRATIVE: CASE EVENT DATE: 20160504
